FAERS Safety Report 8732996 (Version 3)
Quarter: 2012Q4

REPORT INFORMATION
  Report Type: 
  Country: US (occurrence: US)
  Receive Date: 20120820
  Receipt Date: 20120905
  Transmission Date: 20130627
  Serious: No
  Sender: FDA-Public Use
  Company Number: US-ASTRAZENECA-2012SE43076

PATIENT
  Age: 58 Year
  Sex: Female

DRUGS (2)
  1. NEXIUM [Suspect]
     Route: 048
  2. NEXIUM [Suspect]
     Dosage: GENERIC
     Route: 048

REACTIONS (6)
  - Gastrooesophageal reflux disease [Unknown]
  - Dysgeusia [Unknown]
  - Vomiting [Unknown]
  - Malaise [Unknown]
  - Throat irritation [Unknown]
  - Drug ineffective [Unknown]
